FAERS Safety Report 5337249-X (Version None)
Quarter: 2007Q2

REPORT INFORMATION
  Report Type: 
  Country: None (occurrence: None)
  Receive Date: 20070529
  Receipt Date: 20070511
  Transmission Date: 20071010
  Serious: Yes (Other)
  Sender: FDA-Public Use
  Company Number: B0455030A

PATIENT
  Age: 58 Year
  Sex: Female
  Weight: 47 kg

DRUGS (1)
  1. DEROXAT [Suspect]
     Indication: AGORAPHOBIA
     Dosage: 20MG PER DAY
     Route: 048
     Dates: start: 20040101, end: 20061201

REACTIONS (5)
  - MACULAR HOLE [None]
  - RETINAL DETACHMENT [None]
  - URINARY TRACT INFECTION [None]
  - VISION BLURRED [None]
  - VISUAL ACUITY REDUCED [None]
